FAERS Safety Report 5320899-4 (Version None)
Quarter: 2007Q2

REPORT INFORMATION
  Report Type: 
  Country: None (occurrence: None)
  Receive Date: 20070504
  Receipt Date: 20070426
  Transmission Date: 20071010
  Serious: Yes (Hospitalization)
  Sender: FDA-Public Use
  Company Number: T200700465

PATIENT
  Age: 21 Year
  Sex: Male
  Weight: 100 kg

DRUGS (2)
  1. OPTIRAY 300 [Suspect]
     Indication: COMPUTERISED TOMOGRAM
     Dosage: 75 ML SINGLE INTRAVENOUS
     Route: 042
     Dates: start: 20070419, end: 20070419
  2. PREDNISOLUT (PREDNISOLONE SODIUM SUCCINATE) [Concomitant]

REACTIONS (3)
  - ANGIOEDEMA [None]
  - CHEST PAIN [None]
  - NASAL CONGESTION [None]
